FAERS Safety Report 13449714 (Version 1)
Quarter: 2017Q2

REPORT INFORMATION
  Report Type: Spontaneous
  Country: US (occurrence: US)
  Receive Date: 20170417
  Receipt Date: 20170417
  Transmission Date: 20170830
  Serious: No
  Sender: FDA-Public Use
  Company Number: US-BANPHARM-20164643

PATIENT
  Age: 65 Year
  Sex: Male
  Weight: 81.65 kg

DRUGS (3)
  1. ALEVE [Suspect]
     Active Substance: NAPROXEN SODIUM
     Dosage: 1 DF, PRN,
     Route: 048
     Dates: start: 2014
  2. XANAX [Concomitant]
     Active Substance: ALPRAZOLAM
  3. LIPITOR [Concomitant]
     Active Substance: ATORVASTATIN CALCIUM

REACTIONS (1)
  - No adverse event [Unknown]
